FAERS Safety Report 10224283 (Version 2)
Quarter: 2014Q2

REPORT INFORMATION
  Report Type: Report from Study
  Country: JP (occurrence: JP)
  Receive Date: 20140609
  Receipt Date: 20140609
  Transmission Date: 20141212
  Serious: Yes (Life-Threatening, Hospitalization)
  Sender: FDA-Public Use
  Company Number: JP-SA-THYM-1004098

PATIENT
  Age: 45 Year
  Sex: Female
  Weight: 47 kg

DRUGS (19)
  1. THYMOGLOBULINE [Suspect]
     Indication: APLASTIC ANAEMIA
     Dosage: 175 MG, QD
     Route: 065
     Dates: start: 20110926, end: 20110930
  2. PRIDOL [Concomitant]
     Indication: PROPHYLAXIS
     Dosage: 250 MG, UNK
     Dates: start: 20110926, end: 20110926
  3. PRIDOL [Concomitant]
     Indication: PROPHYLAXIS
     Dosage: 125 MG, UNK
     Dates: start: 20110927, end: 20110927
  4. PRIDOL [Concomitant]
     Indication: PROPHYLAXIS
     Dosage: 250 MG, UNK
     Dates: start: 20110928, end: 20110928
  5. PRIDOL [Concomitant]
     Indication: PROPHYLAXIS
     Dosage: 125 MG, UNK
     Dates: start: 20110830, end: 20110830
  6. CHLORPHENAMINE MALEATE [Concomitant]
     Indication: PROPHYLAXIS
     Dosage: 5 MG, UNK
     Dates: start: 20110927, end: 20111002
  7. NEUTROGIN [Concomitant]
     Indication: APLASTIC ANAEMIA
     Dosage: 250 MCG, UNK
     Dates: start: 20111021, end: 20111023
  8. NEUTROGIN [Concomitant]
     Indication: APLASTIC ANAEMIA
     Dates: start: 20111202, end: 20111226
  9. MAXIPIME [Concomitant]
     Indication: APLASTIC ANAEMIA
  10. PREDONINE [Concomitant]
     Indication: PROPHYLAXIS
     Dosage: 30 MG, UNK (INJECTION)
     Dates: start: 20111001, end: 20111002
  11. PREDONINE [Concomitant]
     Indication: PROPHYLAXIS
     Dosage: 20 MG, UNK (INJECTION)
     Dates: start: 20111003, end: 20111005
  12. PREDONINE [Concomitant]
     Indication: PROPHYLAXIS
     Dosage: 10 MG, UNK (INJECTION)
     Dates: start: 20111006, end: 20111007
  13. PREDONINE [Concomitant]
     Indication: PROPHYLAXIS
     Dosage: 10 MG, UNK
     Dates: start: 20111008, end: 20111017
  14. PREDONINE [Concomitant]
     Indication: PROPHYLAXIS
     Dosage: 5 MG, UNK
     Dates: start: 20111018, end: 20111024
  15. NEORAL [Concomitant]
     Indication: APLASTIC ANAEMIA
     Dosage: 150 MG, UNK
     Dates: start: 20110926, end: 20111031
  16. NEORAL [Concomitant]
     Indication: APLASTIC ANAEMIA
     Dosage: 100 MG, UNK
     Dates: start: 20111101
  17. NEORAL [Concomitant]
     Indication: APLASTIC ANAEMIA
     Dates: end: 20121224
  18. ITRIZOLE [Concomitant]
     Indication: PROPHYLAXIS
     Dosage: 20 ML, UNK
     Dates: start: 20110926, end: 20111024
  19. VALTREX [Concomitant]
     Indication: PROPHYLAXIS
     Dosage: 1000 MG, UNK
     Dates: start: 20110926, end: 20111205

REACTIONS (6)
  - Haemorrhagic cerebral infarction [Not Recovered/Not Resolved]
  - Septic shock [Not Recovered/Not Resolved]
  - Periodontitis [Not Recovered/Not Resolved]
  - Cellulitis [Not Recovered/Not Resolved]
  - Epilepsy [Not Recovered/Not Resolved]
  - Cytomegalovirus infection [Unknown]
